FAERS Safety Report 14144258 (Version 1)
Quarter: 2017Q4

REPORT INFORMATION
  Report Type: Spontaneous
  Country: US (occurrence: None)
  Receive Date: 20171030
  Receipt Date: 20171030
  Transmission Date: 20180321
  Serious: Yes (Death)
  Sender: FDA-Public Use
  Company Number: None

PATIENT
  Age: 78 Year
  Sex: Male

DRUGS (2)
  1. CAPECITABINE 500MG [Suspect]
     Active Substance: CAPECITABINE
     Indication: PANCREATIC CARCINOMA
     Dosage: FREQUENCY - 9 TABS DAILY
     Route: 048
     Dates: start: 20170914, end: 20171022
  2. PROCRIT [Suspect]
     Active Substance: ERYTHROPOIETIN
     Indication: IRON DEFICIENCY
     Dosage: DOSE - 40,000 UNITS
     Route: 058
     Dates: start: 20170726, end: 20171022

REACTIONS (1)
  - Death [None]

NARRATIVE: CASE EVENT DATE: 20171022
